FAERS Safety Report 4555536-X (Version None)
Quarter: 2005Q1

REPORT INFORMATION
  Report Type: 
  Country: None (occurrence: None)
  Receive Date: 20050119
  Receipt Date: 20041126
  Transmission Date: 20050727
  Serious: Yes (Hospitalization)
  Sender: FDA-Public Use
  Company Number: SE-BRISTOL-MYERS SQUIBB COMPANY-12782413

PATIENT
  Age: 71 Year
  Sex: Male

DRUGS (7)
  1. STOCRIN TABS 600 MG [Suspect]
     Indication: HIV INFECTION
     Dosage: ONCE DAILY
     Route: 048
     Dates: start: 20020201
  2. VIDEX EC [Suspect]
     Indication: HIV INFECTION
     Route: 048
     Dates: start: 20020201
  3. EPIVIR [Suspect]
     Indication: HIV INFECTION
     Route: 048
     Dates: start: 20020201
  4. TENORMIN [Concomitant]
  5. LASIX [Concomitant]
  6. RENITEC [Concomitant]
  7. DAONIL [Concomitant]

REACTIONS (1)
  - VENOUS THROMBOSIS LIMB [None]
